FAERS Safety Report 7221541-8 (Version None)
Quarter: 2011Q1

REPORT INFORMATION
  Report Type: 
  Country: None (occurrence: None)
  Receive Date: 20110112
  Receipt Date: 20101230
  Transmission Date: 20110831
  Serious: Yes (Hospitalization)
  Sender: FDA-Public Use
  Company Number: IT-BAYER-2010-004230

PATIENT
  Sex: Male

DRUGS (4)
  1. PROCAPTAN [Concomitant]
     Dosage: 5 MG, UNK
     Route: 048
  2. AVELOX [Suspect]
     Indication: BRONCHITIS
     Dosage: 400 MG, QD
     Route: 048
     Dates: start: 20101205, end: 20101209
  3. NORVASC [Concomitant]
     Indication: HYPERTENSION
     Dosage: 10 MG, UNK
     Route: 048
  4. PARIET [Concomitant]
     Dosage: 10 MG, UNK
     Route: 048

REACTIONS (1)
  - GASTROENTERITIS [None]
